FAERS Safety Report 13938464 (Version 2)
Quarter: 2017Q3

REPORT INFORMATION
  Report Type: Spontaneous
  Country: RU (occurrence: RU)
  Receive Date: 20170905
  Receipt Date: 20170908
  Transmission Date: 20171127
  Serious: Yes (Other)
  Sender: FDA-Public Use
  Company Number: RU-ASTRAZENECA-2017SE90060

PATIENT
  Age: 21198 Day
  Sex: Male

DRUGS (6)
  1. ASPIRIN. [Suspect]
     Active Substance: ASPIRIN
     Dosage: 125
     Route: 065
     Dates: start: 20170826, end: 20170831
  2. ATORIS [Suspect]
     Active Substance: ATORVASTATIN CALCIUM
     Dosage: 20
     Route: 065
     Dates: start: 20170826, end: 20170831
  3. BRILINTA [Suspect]
     Active Substance: TICAGRELOR
     Indication: ACUTE MYOCARDIAL INFARCTION
     Dosage: ONCE/SINGLE ADMINISTRATION
     Route: 048
     Dates: end: 20170830
  4. OMEZ [Suspect]
     Active Substance: OMEPRAZOLE
     Dosage: 20
     Route: 048
     Dates: start: 20170826, end: 20170831
  5. BRILINTA [Suspect]
     Active Substance: TICAGRELOR
     Indication: ACUTE MYOCARDIAL INFARCTION
     Dosage: 180.0MG ONCE/SINGLE ADMINISTRATION
     Route: 048
     Dates: start: 20170826, end: 20170826
  6. ENALAPRIL [Suspect]
     Active Substance: ENALAPRIL
     Dosage: 20
     Route: 065
     Dates: start: 20170826, end: 20170831

REACTIONS (1)
  - Vascular stent thrombosis [Recovered/Resolved]

NARRATIVE: CASE EVENT DATE: 20170830
